FAERS Safety Report 7774242-1 (Version None)
Quarter: 2011Q3

REPORT INFORMATION
  Report Type: 
  Country: None (occurrence: None)
  Receive Date: 20110921
  Receipt Date: 20110906
  Transmission Date: 20111222
  Serious: Yes (Other)
  Sender: FDA-Public Use
  Company Number: 2011MA013057

PATIENT
  Age: 50 Year
  Sex: Female

DRUGS (6)
  1. EPIRUBICIN HYDROCHLORIDE [Suspect]
     Indication: METASTASES TO LUNG
     Dosage: 60 MG/M*2
  2. EPIRUBICIN HYDROCHLORIDE [Suspect]
     Indication: BREAST CANCER
     Dosage: 60 MG/M*2
  3. FLUOROURACIL [Suspect]
     Indication: BREAST CANCER
     Dosage: 500 MG/M*2
  4. FLUOROURACIL [Suspect]
     Indication: METASTASES TO LUNG
     Dosage: 500 MG/M*2
  5. CYCLOPHOSPHAMIDE [Suspect]
     Indication: METASTASES TO LUNG
     Dosage: 500 MG/M*2
  6. CYCLOPHOSPHAMIDE [Suspect]
     Indication: BREAST CANCER
     Dosage: 500 MG/M*2

REACTIONS (7)
  - NEUTROPENIA [None]
  - HYPERVENTILATION [None]
  - MALAISE [None]
  - NEUROPATHY PERIPHERAL [None]
  - NAUSEA [None]
  - TOXICITY TO VARIOUS AGENTS [None]
  - FATIGUE [None]
